FAERS Safety Report 19413652 (Version 1)
Quarter: 2021Q2

REPORT INFORMATION
  Report Type: Spontaneous
  Country: US (occurrence: US)
  Receive Date: 20210614
  Receipt Date: 20210614
  Transmission Date: 20210717
  Serious: Yes (Other)
  Sender: FDA-Public Use
  Company Number: US-BAYER-2019-168727

PATIENT
  Sex: Male

DRUGS (5)
  1. GADOXETIC ACID DISODIUM [Suspect]
     Active Substance: GADOXETATE DISODIUM
  2. OMNISCAN [Suspect]
     Active Substance: GADODIAMIDE
     Indication: MAGNETIC RESONANCE IMAGING
  3. MULTIHANCE [Suspect]
     Active Substance: GADOBENATE DIMEGLUMINE
     Indication: MAGNETIC RESONANCE IMAGING
  4. OPTIMARK [Suspect]
     Active Substance: GADOVERSETAMIDE
     Indication: MAGNETIC RESONANCE IMAGING
  5. MAGNEVIST [Suspect]
     Active Substance: GADOPENTETATE DIMEGLUMINE
     Indication: MAGNETIC RESONANCE IMAGING
     Route: 042

REACTIONS (17)
  - Inflammation [None]
  - Burning sensation [None]
  - Pain [None]
  - Mobility decreased [None]
  - Paraesthesia [None]
  - Arthralgia [None]
  - Anxiety [None]
  - Feeling abnormal [None]
  - Fatigue [None]
  - Contrast media deposition [None]
  - Muscle spasms [None]
  - Confusional state [None]
  - Asthenia [None]
  - Rash papular [None]
  - Hypoaesthesia [None]
  - Gadolinium deposition disease [None]
  - Injury [None]
